FAERS Safety Report 4324816-5 (Version None)
Quarter: 2004Q1

REPORT INFORMATION
  Report Type: 
  Country: None (occurrence: None)
  Receive Date: 20040325
  Receipt Date: 20040325
  Transmission Date: 20041129
  Serious: No
  Sender: FDA-Public Use
  Company Number: None

PATIENT
  Age: 20 Year
  Sex: Female
  Weight: 61.2356 kg

DRUGS (3)
  1. ZOLOFT [Suspect]
     Indication: ANXIETY
     Dosage: 50 MG PER DAY ORAL
     Route: 048
     Dates: start: 20031115, end: 20040322
  2. ZOLOFT [Suspect]
     Indication: DEPRESSION
     Dosage: 50 MG PER DAY ORAL
     Route: 048
     Dates: start: 20031115, end: 20040322
  3. ZOLOFT [Suspect]
     Indication: PANIC DISORDER
     Dosage: 50 MG PER DAY ORAL
     Route: 048
     Dates: start: 20031115, end: 20040322

REACTIONS (9)
  - ACTIVITIES OF DAILY LIVING IMPAIRED [None]
  - DIZZINESS [None]
  - DRUG WITHDRAWAL SYNDROME [None]
  - FEELING ABNORMAL [None]
  - HEADACHE [None]
  - NAUSEA [None]
  - SUICIDAL IDEATION [None]
  - TREMOR [None]
  - VISION BLURRED [None]
